FAERS Safety Report 24697253 (Version 2)
Quarter: 2024Q4

REPORT INFORMATION
  Report Type: Other
  Country: JP (occurrence: JP)
  Receive Date: 20241204
  Receipt Date: 20241206
  Transmission Date: 20250114
  Serious: Yes (Other)
  Sender: APPCO PHARMA LLC
  Company Number: JP-Appco Pharma LLC-2166487

PATIENT

DRUGS (23)
  1. LABETALOL HYDROCHLORIDE [Suspect]
     Active Substance: LABETALOL HYDROCHLORIDE
     Indication: Product used for unknown indication
  2. BETAMETHASONE [Suspect]
     Active Substance: BETAMETHASONE
  3. WARFARIN SODIUM [Suspect]
     Active Substance: WARFARIN SODIUM
  4. TACROLIMUS [Suspect]
     Active Substance: TACROLIMUS
  5. PREDNISOLONE [Suspect]
     Active Substance: PREDNISOLONE
  6. OMEPRAZOLE [Suspect]
     Active Substance: OMEPRAZOLE
  7. NIFEDIPINE [Suspect]
     Active Substance: NIFEDIPINE
  8. METHYLCOBALAMIN [Suspect]
     Active Substance: METHYLCOBALAMIN
  9. ESOMEPRAZOLE. [Suspect]
     Active Substance: ESOMEPRAZOLE MAGNESIUM
  10. ASPIRIN [Suspect]
     Active Substance: ASPIRIN
  11. ALFACALCIDOL [Suspect]
     Active Substance: ALFACALCIDOL
  12. SUGAMMADEX [Suspect]
     Active Substance: SUGAMMADEX
  13. ROPIVACAINE. [Suspect]
     Active Substance: ROPIVACAINE HYDROCHLORIDE
  14. ROCURONIUM [Suspect]
     Active Substance: ROCURONIUM BROMIDE
  15. REMIFENTANIL HYDROCHLORIDE [Suspect]
     Active Substance: REMIFENTANIL HYDROCHLORIDE
  16. PROPOFOL [Suspect]
     Active Substance: PROPOFOL
  17. PENTAZOCINE [Suspect]
     Active Substance: PENTAZOCINE
  18. OXYTOCIN [Suspect]
     Active Substance: OXYTOCIN
  19. NITROGLYCERIN [Suspect]
     Active Substance: NITROGLYCERIN
  20. LIDOCAINE [Suspect]
     Active Substance: LIDOCAINE
  21. HEPARIN CALCIUM [Suspect]
     Active Substance: HEPARIN CALCIUM
  22. EPHEDRINE [Suspect]
     Active Substance: EPHEDRINE
  23. CEFAZOLIN SODIUM [Suspect]
     Active Substance: CEFAZOLIN SODIUM

REACTIONS (4)
  - Foetal exposure during pregnancy [Unknown]
  - Patent ductus arteriosus [Unknown]
  - Low birth weight baby [Unknown]
  - Premature baby [Unknown]
